FAERS Safety Report 9459416 (Version 1)
Quarter: 2013Q3

REPORT INFORMATION
  Report Type: Spontaneous
  Country: US (occurrence: US)
  Receive Date: 20130815
  Receipt Date: 20130815
  Transmission Date: 20140515
  Serious: Yes (Hospitalization)
  Sender: FDA-Public Use
  Company Number: US-MERCK-1308USA003407

PATIENT
  Sex: Female

DRUGS (13)
  1. DECADRON [Suspect]
     Dosage: 0.5 MG, FREQUENCY NOT PROVIDED
     Route: 048
  2. REVLIMID [Suspect]
     Indication: PLASMA CELL MYELOMA
     Dosage: 25 MG ( 1 IN 1 DAY)
     Route: 048
     Dates: start: 200905, end: 2009
  3. REVLIMID [Suspect]
     Dosage: 15-10 MG (1 IN 1 DAY)
     Route: 048
     Dates: start: 200908, end: 2010
  4. REVLIMID [Suspect]
     Dosage: 10 MG (10 MG, 14 IN 14 DAYS)
     Route: 048
     Dates: start: 20130413
  5. WARFARIN SODIUM [Concomitant]
     Dosage: DAILY DOSE: 3 UNITS NOT PROVIDED
     Route: 048
  6. NEURONTIN [Concomitant]
     Dosage: 600 MG, FREQUENCY NOT PROVIDED
  7. ACYCLOVIR [Concomitant]
     Dosage: 400 MG, FREQUENCY NOT PROVIDED
  8. OXYCODONE HYDROCHLORIDE [Concomitant]
     Dosage: DAILY DOSE:30 UNITS  NOT PROVIDED
  9. OXYCONTIN [Concomitant]
     Indication: PRODUCT USED FOR UNKNOWN INDICATION
     Dosage: DAILY DOSE:160 UNITS NOT PROVIDED
  10. OCUVITE PRESERVISION [Concomitant]
     Dosage: 226-200 UNITS NOT PROVIDED
  11. CALCIUM (UNSPECIFIED) [Concomitant]
     Dosage: DAILY DOSE:500 MG
  12. TYLENOL [Concomitant]
     Dosage: DAILY DOSE 650; UNITS NOT PROVIDED
  13. IRON (UNSPECIFIED) [Concomitant]
     Indication: PRODUCT USED FOR UNKNOWN INDICATION
     Dosage: 125-25-1 MG

REACTIONS (1)
  - Cellulitis [Unknown]
